FAERS Safety Report 18941952 (Version 1)
Quarter: 2021Q1

REPORT INFORMATION
  Report Type: Report from Study
  Country: US (occurrence: US)
  Receive Date: 20210225
  Receipt Date: 20210225
  Transmission Date: 20210420
  Serious: No
  Sender: FDA-Public Use
  Company Number: NVSC2019US095401

PATIENT
  Sex: Male

DRUGS (1)
  1. ENTRESTO [Suspect]
     Active Substance: SACUBITRIL\VALSARTAN
     Indication: ILLNESS
     Dosage: 100 UNK (49/51)
     Route: 048

REACTIONS (4)
  - Product use issue [Unknown]
  - Influenza [Recovering/Resolving]
  - Dyspnoea [Unknown]
  - Illness [Recovering/Resolving]
